FAERS Safety Report 4527740-8 (Version None)
Quarter: 2004Q4

REPORT INFORMATION
  Report Type: 
  Country: None (occurrence: None)
  Receive Date: 20041215
  Receipt Date: 20041105
  Transmission Date: 20050328
  Serious: Yes (Other)
  Sender: FDA-Public Use
  Company Number: JP-ROCHE-385799

PATIENT
  Age: 68 Year
  Sex: Female

DRUGS (5)
  1. CAPECITABINE [Suspect]
     Indication: BREAST CANCER
     Route: 048
     Dates: start: 20030718, end: 20031031
  2. NORVASC [Concomitant]
     Route: 048
     Dates: start: 20030401, end: 20040123
  3. ARIMIDEX [Concomitant]
     Route: 048
     Dates: start: 20030401, end: 20040123
  4. ONE-ALPHA [Concomitant]
     Route: 048
     Dates: start: 20030702, end: 20040123
  5. OSTELUC [Concomitant]
     Route: 048
     Dates: start: 20030709, end: 20040123

REACTIONS (3)
  - CELLULITIS [None]
  - LYMPHANGITIS [None]
  - PALMAR-PLANTAR ERYTHRODYSAESTHESIA SYNDROME [None]
